FAERS Safety Report 25196535 (Version 3)
Quarter: 2025Q3

REPORT INFORMATION
  Report Type: Spontaneous
  Country: US (occurrence: US)
  Receive Date: 20250415
  Receipt Date: 20250730
  Transmission Date: 20251021
  Serious: Yes (Hospitalization, Other)
  Sender: CHIESI
  Company Number: US-CHIESI-2025CHF02396

PATIENT
  Sex: Female

DRUGS (1)
  1. MYALEPT [Suspect]
     Active Substance: METRELEPTIN
     Indication: Congenital generalised lipodystrophy
     Route: 065

REACTIONS (12)
  - Ill-defined disorder [Unknown]
  - Pancreatitis [Recovered/Resolved]
  - Septic shock [Recovered/Resolved]
  - Respiratory failure [Recovered/Resolved]
  - Hepatic steatosis [Unknown]
  - Arthropathy [Unknown]
  - COVID-19 [Recovered/Resolved]
  - Arthropathy [Unknown]
  - Pain [Unknown]
  - Drug specific antibody present [Recovered/Resolved]
  - Product administration interrupted [Recovered/Resolved]
  - Drug ineffective [Recovered/Resolved]
